FAERS Safety Report 20726339 (Version 2)
Quarter: 2022Q2

REPORT INFORMATION
  Report Type: Report from Study
  Country: US (occurrence: US)
  Receive Date: 20220419
  Receipt Date: 20220427
  Transmission Date: 20220720
  Serious: Yes (Life-Threatening, Hospitalization, Other)
  Sender: FDA-Public Use
  Company Number: US-ABBVIE-22P-163-4355924-00

PATIENT
  Age: 12 Year
  Sex: Male
  Weight: 32.4 kg

DRUGS (15)
  1. VENETOCLAX [Suspect]
     Active Substance: VENETOCLAX
     Indication: Recurrent cancer
     Route: 048
     Dates: start: 20220228, end: 20220228
  2. VENETOCLAX [Suspect]
     Active Substance: VENETOCLAX
     Indication: Refractory cancer
     Route: 048
     Dates: start: 20220301, end: 20220309
  3. VENETOCLAX [Suspect]
     Active Substance: VENETOCLAX
     Dosage: C2, DAYS 1-5
     Route: 048
     Dates: start: 20220328, end: 20220401
  4. VENETOCLAX [Suspect]
     Active Substance: VENETOCLAX
     Dosage: C2,DAYS1-10, INTERMITTENT DOSING
     Route: 048
     Dates: start: 20220402
  5. TOPOTECAN HYDROCHLORIDE [Suspect]
     Active Substance: TOPOTECAN HYDROCHLORIDE
     Indication: Recurrent cancer
     Dosage: ONCE A DAY, DAYS 3-7(5 DAYS EVERY 21 DAYS)
     Route: 042
     Dates: start: 20220302, end: 20220306
  6. TOPOTECAN HYDROCHLORIDE [Suspect]
     Active Substance: TOPOTECAN HYDROCHLORIDE
     Indication: Refractory cancer
     Dosage: 5 DAYS EVERY 21 DAYS
     Route: 042
     Dates: start: 20220328
  7. CYCLOPHOSPHAMIDE [Suspect]
     Active Substance: CYCLOPHOSPHAMIDE
     Indication: Recurrent cancer
     Dosage: ONCE A DAY, DAYS 3-7 (5 DAYS EVERY 21 DAYS)
     Route: 042
     Dates: start: 20220302, end: 20220306
  8. CYCLOPHOSPHAMIDE [Suspect]
     Active Substance: CYCLOPHOSPHAMIDE
     Indication: Refractory cancer
     Dosage: 5 DAYS EVERY 21 DAYS
     Route: 042
     Dates: start: 20220328
  9. ONDANSETRON [Concomitant]
     Active Substance: ONDANSETRON
     Indication: Prophylaxis of nausea and vomiting
     Dosage: EVERY EIGHT HOURS, PRN
     Route: 048
     Dates: start: 20220228
  10. BACTRIM [Concomitant]
     Active Substance: SULFAMETHOXAZOLE\TRIMETHOPRIM
     Indication: Antifungal prophylaxis
     Dosage: BID EVERY SAT AND SUN
     Route: 048
     Dates: start: 20220305
  11. OXYCODONE [Concomitant]
     Active Substance: OXYCODONE
     Indication: Pain prophylaxis
     Dosage: EVERY SIX HOURS, PRN
     Route: 048
     Dates: start: 20220228
  12. PROMETHAZINE [Concomitant]
     Active Substance: PROMETHAZINE HYDROCHLORIDE
     Indication: Nausea
     Dosage: EVERY SIX HOURS, PRN
     Route: 048
     Dates: start: 20220228
  13. PROMETHAZINE [Concomitant]
     Active Substance: PROMETHAZINE HYDROCHLORIDE
     Indication: Vomiting
  14. LORAZEPAM [Concomitant]
     Active Substance: LORAZEPAM
     Indication: Prophylaxis of nausea and vomiting
     Dosage: EVERY 6 HRS, PRN
     Route: 048
     Dates: start: 20220307
  15. CEFEPIME [Concomitant]
     Active Substance: CEFEPIME HYDROCHLORIDE
     Indication: Febrile neutropenia
     Route: 042
     Dates: start: 20220311

REACTIONS (1)
  - Septic shock [Not Recovered/Not Resolved]

NARRATIVE: CASE EVENT DATE: 20220411
